FAERS Safety Report 5072678-3 (Version None)
Quarter: 2006Q3

REPORT INFORMATION
  Report Type: 
  Country: None (occurrence: None)
  Receive Date: 20060807
  Receipt Date: 20060726
  Transmission Date: 20061208
  Serious: Yes (Hospitalization)
  Sender: FDA-Public Use
  Company Number: US-ROCHE-457088

PATIENT
  Age: 62 Year
  Sex: Female
  Weight: 46.3 kg

DRUGS (4)
  1. BONIVA [Suspect]
     Indication: OSTEOPOROSIS
     Dosage: DOSAGE REGIMEN REPORTED AS Q MTH
     Route: 048
     Dates: start: 20050515, end: 20050715
  2. CALTRATE PLUS [Concomitant]
     Indication: OSTEOPOROSIS
     Dosage: DOSAGE REPORTED AS 1
     Route: 048
  3. CENTRUM SILVER [Concomitant]
     Dosage: DOSAGE REGIMEN REPORTED AS 1 QD
     Route: 048
  4. LEVOXYL [Concomitant]
     Route: 048
     Dates: start: 19650615

REACTIONS (2)
  - COLITIS ULCERATIVE [None]
  - WEIGHT DECREASED [None]
